FAERS Safety Report 4646144-0 (Version None)
Quarter: 2005Q2

REPORT INFORMATION
  Report Type: 
  Country: None (occurrence: None)
  Receive Date: 20050427
  Receipt Date: 20041026
  Transmission Date: 20051028
  Serious: No
  Sender: FDA-Public Use
  Company Number: US-GLAXOSMITHKLINE-A0531311A

PATIENT
  Age: 25 Year
  Sex: Female

DRUGS (5)
  1. ZOFRAN [Suspect]
     Indication: HYPEREMESIS GRAVIDARUM
     Dosage: 8MG TWICE PER DAY
     Route: 048
     Dates: start: 20041018
  2. PRENATAL VITAMINS [Concomitant]
  3. PULMICORT [Concomitant]
  4. SINGULAIR [Concomitant]
  5. TILADE [Concomitant]

REACTIONS (3)
  - DRUG EXPOSURE DURING PREGNANCY [None]
  - PRURITUS GENERALISED [None]
  - RASH GENERALISED [None]
